FAERS Safety Report 10800911 (Version 2)
Quarter: 2015Q1

REPORT INFORMATION
  Report Type: Spontaneous
  Country: US (occurrence: US)
  Receive Date: 20150216
  Receipt Date: 20150216
  Transmission Date: 20150721
  Serious: No
  Sender: FDA-Public Use
  Company Number: US-ALLERGAN-1419991US

PATIENT
  Age: 71 Year
  Sex: Female

DRUGS (6)
  1. NABUMETONE. [Concomitant]
     Active Substance: NABUMETONE
     Indication: OSTEOARTHRITIS
  2. RESTASIS [Suspect]
     Active Substance: CYCLOSPORINE
     Indication: DRY EYE
     Dosage: 1 TO 2 DROPS
     Route: 047
  3. CALCIUM [Concomitant]
     Active Substance: CALCIUM
  4. LISINOPRIL. [Concomitant]
     Active Substance: LISINOPRIL
     Indication: BLOOD PRESSURE
  5. MULTIVITAMIN [Concomitant]
     Active Substance: VITAMINS
  6. FISH OIL [Concomitant]
     Active Substance: FISH OIL

REACTIONS (3)
  - Miliaria [Recovered/Resolved]
  - Formication [Recovered/Resolved]
  - Incorrect dose administered [Unknown]

NARRATIVE: CASE EVENT DATE: 201409
